FAERS Safety Report 22619258 (Version 1)
Quarter: 2023Q2

REPORT INFORMATION
  Report Type: Spontaneous
  Country: US (occurrence: US)
  Receive Date: 20230620
  Receipt Date: 20230620
  Transmission Date: 20230721
  Serious: No
  Sender: FDA-Public Use
  Company Number: US-AUROBINDO-AUR-APL-2022-020782

PATIENT
  Sex: Female
  Weight: 49 kg

DRUGS (1)
  1. ZOLPIDEM TARTRATE [Suspect]
     Active Substance: ZOLPIDEM TARTRATE
     Indication: Sleep disorder
     Dosage: 5 MILLIGRAM, AS NECESSARY
     Route: 048
     Dates: start: 20220510

REACTIONS (2)
  - Drug ineffective [Unknown]
  - Product quality issue [Unknown]
